FAERS Safety Report 6137880-8 (Version None)
Quarter: 2009Q1

REPORT INFORMATION
  Report Type: 
  Country: None (occurrence: None)
  Receive Date: 20090331
  Receipt Date: 20090323
  Transmission Date: 20090719
  Serious: Yes (Hospitalization)
  Sender: FDA-Public Use
  Company Number: JP-ELI_LILLY_AND_COMPANY-JP200811001440

PATIENT
  Sex: Male
  Weight: 56 kg

DRUGS (10)
  1. PEMETREXED [Suspect]
     Indication: PLEURAL MESOTHELIOMA MALIGNANT
     Dosage: 500 MG/M2, OTHER
     Route: 042
     Dates: start: 20080226, end: 20080520
  2. CISPLATIN [Suspect]
     Indication: PLEURAL MESOTHELIOMA MALIGNANT
     Dosage: 75 MG/M2, OTHER
     Route: 042
     Dates: start: 20080226, end: 20080422
  3. CISPLATIN [Suspect]
     Dosage: 30 MG/M2, OTHER
     Route: 042
     Dates: start: 20080520, end: 20080520
  4. PANVITAN [Concomitant]
     Dosage: 1 G, DAILY (1/D)
     Route: 048
     Dates: start: 20080218, end: 20080623
  5. MASBLON H [Concomitant]
     Dosage: 1 MG, OTHER
     Route: 030
     Dates: start: 20080218, end: 20080414
  6. HARNAL [Concomitant]
     Indication: BENIGN PROSTATIC HYPERPLASIA
     Dosage: 0.2 MG, DAILY (1/D)
     Route: 048
     Dates: start: 20080109
  7. GASTER [Concomitant]
     Indication: GASTRIC ULCER
     Dosage: 40 MG, DAILY (1/D)
     Route: 048
     Dates: start: 20080109
  8. DIGOXIN [Concomitant]
     Indication: ATRIAL FIBRILLATION
     Dosage: 0.25 MG, DAILY (1/D)
     Route: 048
     Dates: start: 20080109
  9. ZANTAC [Concomitant]
     Indication: PROPHYLAXIS
     Dosage: 100 MG, UNK
     Route: 042
     Dates: start: 20080226, end: 20080522
  10. DECADRON /00016002/ [Concomitant]
     Indication: PROPHYLAXIS
     Dosage: 8 MG, UNK
     Route: 042
     Dates: start: 20080226, end: 20080522

REACTIONS (1)
  - GASTROINTESTINAL TOXICITY [None]
